FAERS Safety Report 20757700 (Version 1)
Quarter: 2022Q2

REPORT INFORMATION
  Report Type: Spontaneous
  Country: US (occurrence: None)
  Receive Date: 20220427
  Receipt Date: 20220427
  Transmission Date: 20220721
  Serious: Yes (Other)
  Sender: FDA-Public Use
  Company Number: None

PATIENT
  Age: 57 Year
  Sex: Female
  Weight: 131.54 kg

DRUGS (2)
  1. GABAPENTIN [Suspect]
     Active Substance: GABAPENTIN
     Indication: Neuropathy peripheral
     Route: 048
     Dates: start: 20140101, end: 20190101
  2. Gabapenlin [Concomitant]
     Dates: start: 20140101, end: 20220101

REACTIONS (1)
  - Visual field defect [None]

NARRATIVE: CASE EVENT DATE: 20220427
